FAERS Safety Report 7579544-X (Version None)
Quarter: 2011Q2

REPORT INFORMATION
  Report Type: 
  Country: None (occurrence: None)
  Receive Date: 20110629
  Receipt Date: 20110621
  Transmission Date: 20111010
  Serious: Yes (Other)
  Sender: FDA-Public Use
  Company Number: US-JNJFOC-20110610838

PATIENT
  Sex: Female

DRUGS (7)
  1. DURAGESIC-100 [Suspect]
     Indication: ADHESION
     Route: 062
     Dates: start: 20040101, end: 20050101
  2. DURAGESIC-100 [Suspect]
     Indication: CYSTITIS INTERSTITIAL
     Route: 062
     Dates: start: 20040101, end: 20050101
  3. FENTANYL [Suspect]
     Indication: ADHESION
     Route: 062
     Dates: start: 20050101
  4. FENTANYL-100 [Suspect]
     Indication: ADHESION
     Dosage: NDC 0781-7244-44
     Route: 062
  5. FENTANYL [Suspect]
     Indication: CYSTITIS INTERSTITIAL
     Route: 062
     Dates: start: 20050101
  6. FENTANYL-100 [Suspect]
     Indication: CYSTITIS INTERSTITIAL
     Dosage: NDC 0781-7244-44
     Route: 062
  7. VICODIN [Concomitant]
     Indication: BREAKTHROUGH PAIN
     Route: 048

REACTIONS (2)
  - PRODUCT ADHESION ISSUE [None]
  - BREAST CANCER [None]
